FAERS Safety Report 10090031 (Version 1)
Quarter: 2014Q2

REPORT INFORMATION
  Report Type: Spontaneous
  Country: AU (occurrence: AU)
  Receive Date: 20140421
  Receipt Date: 20140421
  Transmission Date: 20141212
  Serious: Yes (Other)
  Sender: FDA-Public Use
  Company Number: AU-ROCHE-1383290

PATIENT
  Age: 54 Year
  Sex: Male

DRUGS (2)
  1. PEG-INTERFERON ALFA 2A [Suspect]
     Indication: HEPATITIS C VIRUS TEST POSITIVE
     Route: 058
  2. RIBAVIRIN [Suspect]
     Indication: HEPATITIS C VIRUS TEST POSITIVE
     Route: 048

REACTIONS (2)
  - Renal failure acute [Recovered/Resolved]
  - IgA nephropathy [Recovered/Resolved]
